FAERS Safety Report 18082267 (Version 2)
Quarter: 2020Q3

REPORT INFORMATION
  Report Type: Spontaneous
  Country: CL (occurrence: CL)
  Receive Date: 20200729
  Receipt Date: 20200804
  Transmission Date: 20201103
  Serious: Yes (Other)
  Sender: FDA-Public Use
  Company Number: CL-SA-2018SA024698

PATIENT

DRUGS (1)
  1. FABRAZYME [Suspect]
     Active Substance: AGALSIDASE BETA
     Indication: FABRY^S DISEASE
     Dosage: 70 MG
     Route: 041

REACTIONS (9)
  - COVID-19 [Recovering/Resolving]
  - Pain [Recovering/Resolving]
  - Pain in extremity [Recovered/Resolved]
  - Headache [Recovered/Resolved]
  - Cough [Recovering/Resolving]
  - Ageusia [Recovering/Resolving]
  - SARS-CoV-2 test positive [Recovering/Resolving]
  - Anosmia [Recovering/Resolving]
  - Headache [Recovering/Resolving]

NARRATIVE: CASE EVENT DATE: 20171231
